FAERS Safety Report 16904842 (Version 1)
Quarter: 2019Q4

REPORT INFORMATION
  Report Type: Spontaneous
  Country: GB (occurrence: GB)
  Receive Date: 20191010
  Receipt Date: 20191010
  Transmission Date: 20200122
  Serious: Yes (Hospitalization)
  Sender: FDA-Public Use
  Company Number: GB-MYLANLABS-2019M1094893

PATIENT
  Age: 41 Year
  Sex: Female

DRUGS (9)
  1. ACICLOVIR [Suspect]
     Active Substance: ACYCLOVIR
     Indication: VARICELLA ZOSTER VIRUS INFECTION
     Dosage: UNK
     Route: 065
  2. BETAMETHASONE W/CALCIPOTRIOL [Concomitant]
     Active Substance: BETAMETHASONE DIPROPIONATE\CALCIPOTRIENE HYDRATE
     Dosage: CALCIPOTRIOL 0.005% / BETAMETHASONE DIPROPIONATE 0.05%
     Route: 061
  3. COAL TAR. [Concomitant]
     Active Substance: COAL TAR
     Dosage: AS NECESSARY
     Route: 061
  4. FLUCLOXACILLIN [Suspect]
     Active Substance: FLUCLOXACILLIN
     Indication: IMPETIGO
     Dosage: 4 GRAM, QD
     Route: 042
     Dates: start: 20190606, end: 20190608
  5. DESOGESTREL [Concomitant]
     Active Substance: DESOGESTREL
     Dosage: 75 MICROGRAM, QD
     Route: 048
  6. DERMOL                             /01330701/ [Concomitant]
     Dosage: AS NECESSARY
     Route: 061
  7. SERTRALINE [Suspect]
     Active Substance: SERTRALINE HYDROCHLORIDE
     Indication: PRODUCT USED FOR UNKNOWN INDICATION
     Dosage: 50 MILLIGRAM, QD
     Route: 048
     Dates: start: 20190501, end: 20190605
  8. PROMETHAZINE HYDROCHLORIDE. [Suspect]
     Active Substance: PROMETHAZINE HYDROCHLORIDE
     Indication: PRURITUS
     Dosage: 1-2 AT NIGHT, AS NECESSARY
     Route: 048
     Dates: end: 20190608
  9. FERROUS GLUCONATE [Concomitant]
     Active Substance: FERROUS GLUCONATE
     Dosage: 600 MILLIGRAM, QD
     Route: 048

REACTIONS (2)
  - Liver function test abnormal [Recovering/Resolving]
  - Pustular psoriasis [Not Recovered/Not Resolved]

NARRATIVE: CASE EVENT DATE: 20190605
